FAERS Safety Report 7259904-7 (Version None)
Quarter: 2011Q1

REPORT INFORMATION
  Report Type: 
  Country: None (occurrence: None)
  Receive Date: 20110130
  Receipt Date: 20100901
  Transmission Date: 20110831
  Serious: No
  Sender: FDA-Public Use
  Company Number: US-ABBOTT-10P-163-0669230-00

PATIENT
  Age: 68 Year
  Sex: Female

DRUGS (13)
  1. HUMIRA [Suspect]
     Indication: PSORIATIC ARTHROPATHY
     Dates: start: 20100601
  2. VERAPAMIL [Concomitant]
     Indication: HYPERTENSION
  3. METOPROLOL [Concomitant]
     Indication: HYPERTENSION
  4. HYDROCODONE [Concomitant]
     Indication: PAIN
     Dosage: 5/500 AS NEEDED
  5. HALABATASOL OINT .05 % [Concomitant]
     Indication: PRODUCT USED FOR UNKNOWN INDICATION
  6. CAPAX SHAMPOO [Concomitant]
     Indication: PRODUCT USED FOR UNKNOWN INDICATION
  7. NAPROXEN [Concomitant]
     Indication: PAIN
  8. CALCIUM + VITAMIN D [Concomitant]
     Indication: PRODUCT USED FOR UNKNOWN INDICATION
  9. OMEPRAZOLE [Concomitant]
     Indication: GASTROOESOPHAGEAL REFLUX DISEASE
  10. METFORMIN [Concomitant]
     Indication: DIABETES MELLITUS
  11. GLYBURIDE [Concomitant]
     Indication: DIABETES MELLITUS
     Dosage: 1/2 TAB A DAY 1.25MG
  12. HYDROCHLOROTHIAZIDE [Concomitant]
     Indication: HYPERTENSION
  13. DIGOXIN [Concomitant]
     Indication: PALPITATIONS

REACTIONS (2)
  - ARTHRALGIA [None]
  - GAIT DISTURBANCE [None]
